FAERS Safety Report 13642172 (Version 1)
Quarter: 2017Q2

REPORT INFORMATION
  Report Type: Report from Study
  Country: DE (occurrence: DE)
  Receive Date: 20170612
  Receipt Date: 20170612
  Transmission Date: 20170830
  Serious: Yes (Other)
  Sender: FDA-Public Use
  Company Number: DE-DEPOMED, INC.-DE-2017DEP001229

PATIENT
  Age: 83 Year
  Sex: Male

DRUGS (2)
  1. TAPENTADOL HYDROCHLORIDE [Suspect]
     Active Substance: TAPENTADOL HYDROCHLORIDE
     Dosage: 200 MG, BID
     Route: 048
  2. TAPENTADOL HYDROCHLORIDE [Suspect]
     Active Substance: TAPENTADOL HYDROCHLORIDE
     Indication: PRODUCT USED FOR UNKNOWN INDICATION
     Dosage: 400 MG, BID
     Route: 048
     Dates: start: 20170520

REACTIONS (4)
  - Hypertension [Unknown]
  - Overdose [Unknown]
  - Tachycardia [Unknown]
  - Suicidal ideation [Unknown]

NARRATIVE: CASE EVENT DATE: 20170520
